FAERS Safety Report 7380253-0 (Version None)
Quarter: 2011Q1

REPORT INFORMATION
  Report Type: 
  Country: None (occurrence: None)
  Receive Date: 20110329
  Receipt Date: 20110324
  Transmission Date: 20110831
  Serious: Yes (Death)
  Sender: FDA-Public Use
  Company Number: US-ASTRAZENECA-2011SE16812

PATIENT
  Age: 25429 Day
  Sex: Male

DRUGS (6)
  1. ASPIRIN [Concomitant]
     Dates: start: 20070101, end: 20101119
  2. COUMADIN [Concomitant]
  3. LASIX [Concomitant]
     Dates: start: 20100520
  4. ATENOLOL [Concomitant]
     Dates: start: 20100520, end: 20101119
  5. ATACAND [Suspect]
     Indication: HYPERTENSION
     Route: 048
     Dates: start: 20070522
  6. HYDRALAZINE HCL [Concomitant]

REACTIONS (1)
  - DEATH [None]
